FAERS Safety Report 16645299 (Version 1)
Quarter: 2019Q3

REPORT INFORMATION
  Report Type: Spontaneous
  Country: US (occurrence: US)
  Receive Date: 20190729
  Receipt Date: 20190729
  Transmission Date: 20191004
  Serious: No
  Sender: FDA-Public Use
  Company Number: US-009507513-1907USA012091

PATIENT
  Sex: Female

DRUGS (6)
  1. FOLLISTIM AQ [Suspect]
     Active Substance: FOLLITROPIN
     Indication: INFERTILITY FEMALE
     Dosage: 300 IU INTERNATIONAL UNIT(S), QD
     Route: 058
     Dates: start: 20190206
  2. ESTRADIOL. [Concomitant]
     Active Substance: ESTRADIOL
  3. GANIRELIX ACETATE. [Concomitant]
     Active Substance: GANIRELIX ACETATE
  4. PREGNYL [Concomitant]
     Active Substance: CHORIOGONADOTROPIN ALFA
  5. DOXYCYL [Concomitant]
     Active Substance: DOXYCYCLINE HYDROCHLORIDE
  6. MENOPUR [Concomitant]
     Active Substance: FOLLITROPIN\LUTEINIZING HORMONE

REACTIONS (1)
  - Headache [Unknown]
